FAERS Safety Report 9232802 (Version 1)
Quarter: 2013Q2

REPORT INFORMATION
  Report Type: Report from Study
  Country: CA (occurrence: CA)
  Receive Date: 20130416
  Receipt Date: 20130416
  Transmission Date: 20140414
  Serious: Yes (Other)
  Sender: FDA-Public Use
  Company Number: CA-JNJFOC-20130404268

PATIENT
  Sex: Male
  Weight: 68 kg

DRUGS (4)
  1. REMICADE [Suspect]
     Indication: COLITIS ULCERATIVE
     Route: 042
  2. REMICADE [Suspect]
     Indication: COLITIS ULCERATIVE
     Route: 042
  3. VENLAFAXINE [Concomitant]
     Indication: DEPRESSION
     Dosage: TAKING THIS FOR 4-5 MONTHS.
     Route: 065
  4. AZATHIOPRINE [Concomitant]
     Indication: COLITIS
     Dosage: SINCE 4 YEARS AGO
     Route: 065

REACTIONS (3)
  - Depression [Unknown]
  - Colitis ulcerative [Unknown]
  - Drug tolerance increased [Unknown]
